FAERS Safety Report 13157874 (Version 1)
Quarter: 2017Q1

REPORT INFORMATION
  Report Type: Spontaneous
  Country: US (occurrence: US)
  Receive Date: 20170124
  Receipt Date: 20170124
  Transmission Date: 20170428
  Serious: Yes (Other)
  Sender: FDA-Public Use
  Company Number: None

PATIENT
  Age: 34 Year
  Sex: Female
  Weight: 85.5 kg

DRUGS (4)
  1. SKIN AND NAILS VITAMINS [Concomitant]
  2. ZYRTEX [Concomitant]
  3. HEALTHY HAIR SCALP PROTECT [Concomitant]
     Active Substance: ENSULIZOLE\SULISOBENZONE
  4. GILDESS FE [Suspect]
     Active Substance: ETHINYL ESTRADIOL\NORETHINDRONE
     Indication: CONTRACEPTION
     Route: 048
     Dates: start: 20140315, end: 20161101

REACTIONS (6)
  - Uterine leiomyoma [None]
  - Metrorrhagia [None]
  - Product quality issue [None]
  - Chest pain [None]
  - Ovarian cyst [None]
  - Dizziness [None]

NARRATIVE: CASE EVENT DATE: 20160308
